FAERS Safety Report 6175684-0 (Version None)
Quarter: 2009Q2

REPORT INFORMATION
  Report Type: 
  Country: None (occurrence: None)
  Receive Date: 20090501
  Receipt Date: 20090422
  Transmission Date: 20091009
  Serious: Yes (Other)
  Sender: FDA-Public Use
  Company Number: AU-JNJFOC-20090405412

PATIENT
  Age: 24 Year
  Sex: Female

DRUGS (4)
  1. REMICADE [Suspect]
     Dosage: GIVEN 3 AMPULES
     Route: 042
  2. REMICADE [Suspect]
     Route: 042
  3. REMICADE [Suspect]
     Indication: CROHN'S DISEASE
     Dosage: 2 INFUSIONS ON UNSPCEIFIED DATES IN CANADA
     Route: 042
  4. IRON [Suspect]
     Indication: DRUG USE FOR UNKNOWN INDICATION

REACTIONS (5)
  - BACK PAIN [None]
  - HYPOKINESIA [None]
  - INFUSION RELATED REACTION [None]
  - MUSCULOSKELETAL STIFFNESS [None]
  - URTICARIA [None]
